FAERS Safety Report 4308304-8 (Version None)
Quarter: 2004Q1

REPORT INFORMATION
  Report Type: 
  Country: None (occurrence: None)
  Receive Date: 20040301
  Receipt Date: 20031125
  Transmission Date: 20041129
  Serious: No
  Sender: FDA-Public Use
  Company Number: US-BRISTOL-MYERS SQUIBB COMPANY-12444360

PATIENT
  Age: 19 Year
  Sex: Male
  Weight: 107 kg

DRUGS (5)
  1. GLUCOPHAGE [Suspect]
     Indication: WEIGHT CONTROL
     Dosage: STARTED ON 1 TABLET DAILY FOR 5 DAYS THEN 2 DAILY FOR 5 DAYS THEN INCREASED TO 3 DAILY
     Route: 048
  2. LAMICTAL [Concomitant]
  3. NEURONTIN [Concomitant]
  4. NEXIUM [Concomitant]
  5. KLONOPIN [Concomitant]

REACTIONS (4)
  - DEHYDRATION [None]
  - DIARRHOEA [None]
  - DIZZINESS [None]
  - WEIGHT DECREASED [None]
